FAERS Safety Report 5890133-5 (Version None)
Quarter: 2008Q3

REPORT INFORMATION
  Report Type: 
  Country: None (occurrence: None)
  Receive Date: 20080919
  Receipt Date: 20080908
  Transmission Date: 20090109
  Serious: Yes (Life-Threatening, Hospitalization)
  Sender: FDA-Public Use
  Company Number: JP-PFIZER INC-2008067123

PATIENT
  Sex: Female

DRUGS (15)
  1. CELECOX [Suspect]
     Indication: BACK PAIN
     Route: 048
     Dates: start: 20080805, end: 20080807
  2. DOGMATYL [Concomitant]
     Dates: start: 20080722
  3. NEORAL [Concomitant]
     Route: 048
     Dates: start: 20080710
  4. PREDONINE [Concomitant]
     Indication: INTERSTITIAL LUNG DISEASE
     Dosage: DAILY DOSE:5MG
     Route: 048
     Dates: start: 20080710
  5. LANSOPRAZOLE [Concomitant]
     Dosage: DAILY DOSE:15MG
     Route: 048
     Dates: start: 20080707
  6. NORVASC [Concomitant]
     Dosage: DAILY DOSE:5MG
     Route: 048
     Dates: start: 20080707
  7. MUCOSTA [Concomitant]
     Route: 048
     Dates: start: 20080707
  8. LENDORMIN [Concomitant]
  9. ALENDRONATE SODIUM [Concomitant]
     Route: 048
     Dates: start: 20080707
  10. MOHRUS [Concomitant]
  11. DERMOVATE [Concomitant]
  12. ALINAMIN F [Concomitant]
  13. FUNGIZONE [Concomitant]
  14. PYDOXAL [Concomitant]
  15. FLAVITAN [Concomitant]

REACTIONS (1)
  - INTERSTITIAL LUNG DISEASE [None]
